FAERS Safety Report 8313407-7 (Version None)
Quarter: 2012Q2

REPORT INFORMATION
  Report Type: 
  Country: None (occurrence: None)
  Receive Date: 20120426
  Receipt Date: 20120418
  Transmission Date: 20120825
  Serious: Yes (Hospitalization)
  Sender: FDA-Public Use
  Company Number: US-BAYER-2012-039206

PATIENT
  Age: 35 Year
  Sex: Female

DRUGS (8)
  1. DILAUDID [Concomitant]
     Indication: PAIN MANAGEMENT
  2. ADVAIR DISKUS 100/50 [Concomitant]
     Indication: ASTHMA
  3. SINGULAIR [Concomitant]
     Indication: ASTHMA
  4. ALBUTEROL [Concomitant]
     Indication: ASTHMA
  5. PREDNISONE TAB [Concomitant]
     Dosage: 60 MG, UNK
  6. YASMIN [Suspect]
  7. METOPROLOL TARTRATE [Concomitant]
     Indication: TACHYCARDIA
  8. PERCOCET [Concomitant]
     Indication: PAIN MANAGEMENT

REACTIONS (2)
  - PULMONARY EMBOLISM [None]
  - DEEP VEIN THROMBOSIS [None]
